FAERS Safety Report 10450027 (Version 1)
Quarter: 2014Q3

REPORT INFORMATION
  Report Type: Spontaneous
  Country: DK (occurrence: None)
  Receive Date: 20140910
  Receipt Date: 20140910
  Transmission Date: 20150326
  Serious: Yes (Disabling)
  Sender: FDA-Public Use
  Company Number: DK-2014-3587

PATIENT
  Age: 80 Year
  Sex: Female

DRUGS (4)
  1. HERCEPTIN [Suspect]
     Active Substance: TRASTUZUMAB
     Indication: BREAST CANCER METASTATIC
     Dates: start: 20131101, end: 20140429
  2. PERJETA [Suspect]
     Active Substance: PERTUZUMAB
     Indication: BREAST CANCER METASTATIC
     Dates: start: 20131101, end: 20140429
  3. ELTROXIN (LEVOTHYROXINE SODIUM) [Concomitant]
  4. NAVELBINE [Suspect]
     Active Substance: VINORELBINE TARTRATE
     Indication: BREAST CANCER METASTATIC
     Dates: start: 20131101, end: 20140429

REACTIONS (2)
  - Dementia [None]
  - Cognitive disorder [None]

NARRATIVE: CASE EVENT DATE: 20131201
